FAERS Safety Report 7878729-2 (Version None)
Quarter: 2011Q4

REPORT INFORMATION
  Report Type: 
  Country: None (occurrence: None)
  Receive Date: 20111021
  Receipt Date: 20110801
  Transmission Date: 20120403
  Serious: No
  Sender: FDA-Public Use
  Company Number: US-005972

PATIENT
  Sex: Male
  Weight: 74.3899 kg

DRUGS (7)
  1. PLETAL [Concomitant]
  2. METFORMIN HCL [Concomitant]
  3. LISINOPRIL [Concomitant]
  4. OMEPRAZOLE [Concomitant]
  5. DEGARELIX 240 MG [Suspect]
     Indication: PROSTATE CANCER
     Dosage: 240 MG 1 X SUBCUTANEOUS
     Route: 058
     Dates: start: 20110728
  6. LIPITOR [Concomitant]
  7. ASPIRIN [Concomitant]

REACTIONS (1)
  - INJECTION SITE PAIN [None]
